FAERS Safety Report 16641405 (Version 4)
Quarter: 2019Q3

REPORT INFORMATION
  Report Type: Spontaneous
  Country: US (occurrence: US)
  Receive Date: 20190729
  Receipt Date: 20190813
  Transmission Date: 20191004
  Serious: Yes (Hospitalization, Disabling, Other)
  Sender: FDA-Public Use
  Company Number: US-HORIZON-KRY-0521-2019

PATIENT
  Age: 84 Year
  Sex: Male

DRUGS (2)
  1. KRYSTEXXA [Suspect]
     Active Substance: PEGLOTICASE
     Indication: PRODUCT USED FOR UNKNOWN INDICATION
     Dates: start: 20190515
  2. COLCHICINE. [Concomitant]
     Active Substance: COLCHICINE

REACTIONS (13)
  - Gait inability [Unknown]
  - Depression [Unknown]
  - Peripheral swelling [Recovered/Resolved]
  - Diabetes mellitus [Unknown]
  - Intentional dose omission [Unknown]
  - Blood glucose abnormal [Unknown]
  - Urinary retention [Unknown]
  - Pneumonia [Unknown]
  - Decreased appetite [Unknown]
  - Faecaloma [Unknown]
  - Pleural effusion [Unknown]
  - Hypotension [Recovered/Resolved]
  - Haemoglobin abnormal [Unknown]
